FAERS Safety Report 8377295-5 (Version None)
Quarter: 2012Q2

REPORT INFORMATION
  Report Type: 
  Country: None (occurrence: None)
  Receive Date: 20120522
  Receipt Date: 20120516
  Transmission Date: 20120825
  Serious: Yes (Other)
  Sender: FDA-Public Use
  Company Number: US-ROCHE-1003452

PATIENT
  Sex: Female
  Weight: 43.584 kg

DRUGS (3)
  1. ACTINEL (UNK INGREDIENTS) [Concomitant]
  2. FOSAMAX [Concomitant]
  3. BONIVA [Suspect]
     Indication: OSTEOPOROSIS

REACTIONS (4)
  - CERVICAL VERTEBRAL FRACTURE [None]
  - MALAISE [None]
  - ORAL SURGERY [None]
  - HIP FRACTURE [None]
